FAERS Safety Report 4533489-8 (Version None)
Quarter: 2005Q1

REPORT INFORMATION
  Report Type: 
  Country: None (occurrence: None)
  Receive Date: 20041206
  Receipt Date: 20040910
  Transmission Date: 20050727
  Serious: No
  Sender: FDA-Public Use
  Company Number: USA040977915

PATIENT
  Age: 55 Year
  Sex: Male

DRUGS (2)
  1. CYMBALTA [Suspect]
     Indication: DEPRESSION
     Dosage: 60 MG
     Dates: start: 20040824, end: 20040907
  2. REMERON [Concomitant]

REACTIONS (1)
  - SEXUAL DYSFUNCTION [None]
